FAERS Safety Report 13126516 (Version 1)
Quarter: 2017Q1

REPORT INFORMATION
  Report Type: Spontaneous
  Country: US (occurrence: US)
  Receive Date: 20170118
  Receipt Date: 20170118
  Transmission Date: 20170428
  Serious: Yes (Other)
  Sender: FDA-Public Use
  Company Number: US-ROCHE-1680412

PATIENT
  Age: 70 Year
  Sex: Male
  Weight: 85.81 kg

DRUGS (5)
  1. ASPIRIN. [Concomitant]
     Active Substance: ASPIRIN
     Route: 048
  2. PROCHLORPERAZINE. [Concomitant]
     Active Substance: PROCHLORPERAZINE
     Indication: NAUSEA
     Dosage: AS REQUIRED
     Route: 048
  3. RITUXAN [Suspect]
     Active Substance: RITUXIMAB
     Indication: NON-HODGKIN^S LYMPHOMA
     Route: 041
     Dates: start: 20151109
  4. METOPROLOL XL [Concomitant]
     Active Substance: METOPROLOL SUCCINATE
     Route: 048
  5. PANTOPRAZOLE [Concomitant]
     Active Substance: PANTOPRAZOLE SODIUM
     Indication: GASTROINTESTINAL DISORDER
     Route: 048

REACTIONS (2)
  - Pyrexia [Unknown]
  - Serum sickness [Recovered/Resolved]

NARRATIVE: CASE EVENT DATE: 20151109
